FAERS Safety Report 7600049-1 (Version None)
Quarter: 2011Q2

REPORT INFORMATION
  Report Type: 
  Country: None (occurrence: None)
  Receive Date: 20110629
  Receipt Date: 20110614
  Transmission Date: 20111010
  Serious: Yes (Hospitalization)
  Sender: FDA-Public Use
  Company Number: DSU-2011-03220

PATIENT
  Sex: Female
  Weight: 58.514 kg

DRUGS (8)
  1. BENICAR [Suspect]
     Indication: HYPERTENSION
     Dosage: 20 MG (20 MG, QD), PER ORAL  20 MG (20 MG,QD) PERORAL
     Route: 048
     Dates: end: 20110401
  2. BENICAR [Suspect]
     Indication: HYPERTENSION
     Dosage: 20 MG (20 MG, QD), PER ORAL  20 MG (20 MG,QD) PERORAL
     Route: 048
     Dates: start: 20110101
  3. AZOR [Suspect]
     Indication: HYPERTENSION
     Dosage: 5/20 MG (QD) PER ORAL 2.5/10MG ((1/2) 5/20MG TABLET QD), PER ORAL 5/20MG (QD), PER ORAL)
     Route: 048
     Dates: start: 20110401, end: 20110501
  4. AZOR [Suspect]
     Indication: HYPERTENSION
     Dosage: 5/20 MG (QD) PER ORAL 2.5/10MG ((1/2) 5/20MG TABLET QD), PER ORAL 5/20MG (QD), PER ORAL)
     Route: 048
     Dates: start: 20110502, end: 20110501
  5. AZOR [Suspect]
     Indication: HYPERTENSION
     Dosage: 5/20 MG (QD) PER ORAL 2.5/10MG ((1/2) 5/20MG TABLET QD), PER ORAL 5/20MG (QD), PER ORAL)
     Route: 048
     Dates: start: 20110501
  6. PREPARATION H (BUTYL AMINOBENZOATE, HALIBUT-LIVER OIL, YEAST DRIED,AES [Suspect]
     Indication: HAEMORRHOIDS
     Dosage: RECTAL
     Route: 054
     Dates: start: 20110610
  7. CENTRUM SILVER (ASCORBIC ACID, TOCOPHERYL ACETATE, RETINOL, ZINC, CALC [Concomitant]
  8. CALCIUM (CALCIUM) (CALCIUM) [Concomitant]

REACTIONS (7)
  - BONE PAIN [None]
  - FALL [None]
  - OEDEMA PERIPHERAL [None]
  - BALANCE DISORDER [None]
  - DYSPEPSIA [None]
  - ASTHENIA [None]
  - HYPOTENSION [None]
